FAERS Safety Report 20906630 (Version 1)
Quarter: 2022Q2

REPORT INFORMATION
  Report Type: Other
  Country: US (occurrence: None)
  Receive Date: 20220602
  Receipt Date: 20220602
  Transmission Date: 20220721
  Serious: Yes (Other)
  Sender: FDA-Public Use
  Company Number: US-ROCHE-3027035

PATIENT
  Age: 67 Year
  Sex: Female
  Weight: 59.020 kg

DRUGS (2)
  1. OCREVUS [Suspect]
     Active Substance: OCRELIZUMAB
     Indication: Multiple sclerosis
     Dosage: DATE OF TREATMENT : 08/FEB/2021
     Route: 042
  2. CYTOTEC [Concomitant]
     Active Substance: MISOPROSTOL

REACTIONS (5)
  - Off label use [Unknown]
  - Urinary tract infection [Recovered/Resolved]
  - Dysphonia [Not Recovered/Not Resolved]
  - Increased upper airway secretion [Not Recovered/Not Resolved]
  - Pain [Not Recovered/Not Resolved]

NARRATIVE: CASE EVENT DATE: 20210806
